FAERS Safety Report 13532499 (Version 2)
Quarter: 2018Q3

REPORT INFORMATION
  Report Type: Spontaneous
  Country: US (occurrence: US)
  Receive Date: 20170510
  Receipt Date: 20180905
  Transmission Date: 20181010
  Serious: Yes (Other)
  Sender: FDA-Public Use
  Company Number: US-JAZZ-2017-US-005811

PATIENT
  Age: 54 Year
  Sex: Female
  Weight: 73.92 kg

DRUGS (1)
  1. XYREM [Suspect]
     Active Substance: SODIUM OXYBATE
     Indication: PRODUCT USED FOR UNKNOWN INDICATION
     Dosage: 3.5 GRAMS
     Route: 048

REACTIONS (10)
  - Bowen^s disease [Unknown]
  - Hypertension [Unknown]
  - Blood cholesterol increased [Unknown]
  - Narcolepsy [Unknown]
  - Extra dose administered [Unknown]
  - Cataplexy [Unknown]
  - Rheumatoid arthritis [Unknown]
  - Coma [Recovered/Resolved]
  - Migraine [Unknown]
  - Hyperlipidaemia [Unknown]

NARRATIVE: CASE EVENT DATE: 20170423
